FAERS Safety Report 18470194 (Version 1)
Quarter: 2020Q4

REPORT INFORMATION
  Report Type: Spontaneous
  Country: US (occurrence: US)
  Receive Date: 20201105
  Receipt Date: 20201105
  Transmission Date: 20210114
  Serious: Yes (Other)
  Sender: FDA-Public Use
  Company Number: US-PFIZER INC-2019278256

PATIENT
  Age: 29 Year
  Sex: Female

DRUGS (1)
  1. RAPAMUNE [Suspect]
     Active Substance: SIROLIMUS
     Indication: LYMPHANGIOMA
     Dosage: 1.5 MG, 2X/DAY (0.5 TAKE 3 TABS TWICE DAILY)
     Route: 048

REACTIONS (6)
  - Gorham^s disease [Unknown]
  - Product use in unapproved indication [Unknown]
  - Antinuclear antibody positive [Unknown]
  - Wolff-Parkinson-White syndrome [Unknown]
  - Off label use [Unknown]
  - Arthralgia [Unknown]
